FAERS Safety Report 21962431 (Version 1)
Quarter: 2023Q1

REPORT INFORMATION
  Report Type: Other
  Country: None (occurrence: US)
  Receive Date: 20230207
  Receipt Date: 20230207
  Transmission Date: 20230417
  Serious: Yes (Life-Threatening, Hospitalization, Other)
  Sender: FDA-Public Use
  Company Number: US-Spectra Medical Devices, LLC-2137610

PATIENT
  Age: 35 Year
  Sex: Female

DRUGS (11)
  1. LIDOCAINE HYDROCHLORIDE ANHYDROUS [Suspect]
     Active Substance: LIDOCAINE HYDROCHLORIDE ANHYDROUS
     Indication: Anaesthesia
     Route: 065
  2. PHENYLEPHRINE [Suspect]
     Active Substance: PHENYLEPHRINE HYDROCHLORIDE
     Route: 065
  3. EPINEPHRINE [Suspect]
     Active Substance: EPINEPHRINE
     Route: 065
  4. VASOPRESSIN [Suspect]
     Active Substance: VASOPRESSIN
     Route: 065
  5. EPOPROSTENOL [Suspect]
     Active Substance: EPOPROSTENOL
     Route: 065
  6. DEXMEDETOMIDINE [Suspect]
     Active Substance: DEXMEDETOMIDINE
     Route: 065
  7. KETAMINE [Suspect]
     Active Substance: KETAMINE
     Route: 065
  8. FENTANYL [Suspect]
     Active Substance: FENTANYL
     Route: 065
  9. PROPOFOL [Suspect]
     Active Substance: PROPOFOL
     Route: 065
  10. ROCURONIUM [Suspect]
     Active Substance: ROCURONIUM BROMIDE
     Route: 065
  11. NOREPINEPHRINE [Suspect]
     Active Substance: NOREPINEPHRINE
     Route: 065

REACTIONS (5)
  - Local anaesthetic systemic toxicity [Recovered/Resolved]
  - Generalised tonic-clonic seizure [Recovered/Resolved]
  - Respiratory acidosis [Recovered/Resolved]
  - Drug interaction [Recovered/Resolved]
  - Neurotoxicity [Recovered/Resolved]
